FAERS Safety Report 25943200 (Version 1)
Quarter: 2025Q4

REPORT INFORMATION
  Report Type: Spontaneous
  Country: US (occurrence: US)
  Receive Date: 20251021
  Receipt Date: 20251021
  Transmission Date: 20260117
  Serious: No
  Sender: SANOFI AVENTIS
  Company Number: US-SA-2025SA309024

PATIENT
  Age: 54 Year
  Sex: Female
  Weight: 70.91 kg

DRUGS (2)
  1. DUPIXENT [Suspect]
     Active Substance: DUPILUMAB
     Indication: Dermatitis atopic
     Dosage: 300 MG, QOW
     Route: 058
  2. MINOXIDIL [Concomitant]
     Active Substance: MINOXIDIL
     Dosage: UNK

REACTIONS (6)
  - Sleep disorder due to a general medical condition [Recovering/Resolving]
  - Stress [Recovering/Resolving]
  - Dermatitis atopic [Recovering/Resolving]
  - Rash [Recovering/Resolving]
  - Inappropriate schedule of product administration [Recovering/Resolving]
  - Therapeutic response unexpected [Unknown]

NARRATIVE: CASE EVENT DATE: 20251003
